FAERS Safety Report 24350542 (Version 1)
Quarter: 2024Q3

REPORT INFORMATION
  Report Type: Report from Study
  Country: PK (occurrence: PK)
  Receive Date: 20240923
  Receipt Date: 20240923
  Transmission Date: 20241017
  Serious: No
  Sender: ROCHE
  Company Number: PK-ROCHE-3517496

PATIENT
  Age: 46 Year
  Sex: Female
  Weight: 78.0 kg

DRUGS (1)
  1. HERCEPTIN [Suspect]
     Active Substance: TRASTUZUMAB
     Indication: Breast cancer metastatic
     Route: 041
     Dates: start: 20240216

REACTIONS (1)
  - Liver function test abnormal [Unknown]
